FAERS Safety Report 16310243 (Version 2)
Quarter: 2021Q1

REPORT INFORMATION
  Report Type: Spontaneous
  Country: US (occurrence: US)
  Receive Date: 20190514
  Receipt Date: 20210115
  Transmission Date: 20210419
  Serious: Yes (Death, Hospitalization, Other)
  Sender: FDA-Public Use
  Company Number: US-ASTRAZENECA-2019SE67467

PATIENT
  Age: 25764 Day
  Sex: Male
  Weight: 88 kg

DRUGS (86)
  1. FLUZONE [Concomitant]
     Active Substance: INFLUENZA A VIRUS A/CALIFORNIA/7/2009 X-179A (H1N1) ANTIGEN (FORMALDEHYDE INACTIVATED)\INFLUENZA A VIRUS A/VICTORIA/210/2009 X-187 (H3N2) ANTIGEN (FORMALDEHYDE INACTIVATED)\INFLUENZA B VIRUS B/BRISBANE/60/2008 ANTIGEN (FORMALDEHYDE INACTIVATED)
  2. CEPHALEXIN. [Concomitant]
     Active Substance: CEPHALEXIN
  3. SPIRONOLACTONE. [Concomitant]
     Active Substance: SPIRONOLACTONE
  4. PROLIA [Concomitant]
     Active Substance: DENOSUMAB
  5. LEXAPRO [Concomitant]
     Active Substance: ESCITALOPRAM OXALATE
  6. NEXIUM [Suspect]
     Active Substance: ESOMEPRAZOLE MAGNESIUM
     Indication: GASTROOESOPHAGEAL REFLUX DISEASE
     Route: 048
     Dates: start: 200001, end: 201712
  7. PREVACID [Suspect]
     Active Substance: LANSOPRAZOLE
     Indication: GASTROOESOPHAGEAL REFLUX DISEASE
     Dosage: GENERIC
     Route: 065
     Dates: start: 2010, end: 2017
  8. PROTONIX [Suspect]
     Active Substance: PANTOPRAZOLE SODIUM
     Indication: GASTROOESOPHAGEAL REFLUX DISEASE
     Route: 065
     Dates: start: 200001, end: 201712
  9. ZOLPIDEM [Concomitant]
     Active Substance: ZOLPIDEM TARTRATE
     Indication: INSOMNIA
  10. ZOLPIDEM TARTRATE. [Concomitant]
     Active Substance: ZOLPIDEM TARTRATE
  11. CALMOSEPTINE [Concomitant]
     Active Substance: MENTHOL\ZINC OXIDE
  12. CIPRO [Concomitant]
     Active Substance: CIPROFLOXACIN HYDROCHLORIDE
  13. SUDOGEST [Concomitant]
     Active Substance: PSEUDOEPHEDRINE HYDROCHLORIDE
  14. AMLODIPINE BESYLATE. [Concomitant]
     Active Substance: AMLODIPINE BESYLATE
  15. VYTORIN [Concomitant]
     Active Substance: EZETIMIBE\SIMVASTATIN
  16. OFLOXACIN. [Concomitant]
     Active Substance: OFLOXACIN
  17. ATENOLOL. [Concomitant]
     Active Substance: ATENOLOL
     Indication: HYPERTENSION
  18. METOPROLOL SUCCINATE. [Concomitant]
     Active Substance: METOPROLOL SUCCINATE
  19. WARFARIN SODIUM. [Concomitant]
     Active Substance: WARFARIN SODIUM
  20. CALCITRIOL. [Concomitant]
     Active Substance: CALCITRIOL
  21. SYNTHROID [Concomitant]
     Active Substance: LEVOTHYROXINE SODIUM
  22. VANCO [Concomitant]
     Active Substance: VANCOMYCIN
  23. CALCIUM CARBONATE. [Concomitant]
     Active Substance: CALCIUM CARBONATE
  24. GLIPIZIDE. [Concomitant]
     Active Substance: GLIPIZIDE
  25. MAGNESIUM [Concomitant]
     Active Substance: MAGNESIUM
  26. CARVEDILOL. [Concomitant]
     Active Substance: CARVEDILOL
  27. NORTRIPTYLINE [Concomitant]
     Active Substance: NORTRIPTYLINE
  28. PROMETHAZINE [Concomitant]
     Active Substance: PROMETHAZINE HYDROCHLORIDE
  29. AVANDIA [Concomitant]
     Active Substance: ROSIGLITAZONE MALEATE
  30. ESTRACE [Concomitant]
     Active Substance: ESTRADIOL
  31. ONDANSETRON [Concomitant]
     Active Substance: ONDANSETRON
  32. NEXIUM [Suspect]
     Active Substance: ESOMEPRAZOLE MAGNESIUM
     Indication: GASTROOESOPHAGEAL REFLUX DISEASE
     Dosage: GENERIC
     Route: 065
     Dates: start: 2015, end: 2017
  33. PROTONIX [Suspect]
     Active Substance: PANTOPRAZOLE SODIUM
     Indication: GASTROOESOPHAGEAL REFLUX DISEASE
     Route: 065
     Dates: start: 2000, end: 2011
  34. LEVOTHYROXINE. [Concomitant]
     Active Substance: LEVOTHYROXINE
     Indication: HYPOTHYROIDISM
  35. PEPTO?BISMOL [Concomitant]
     Active Substance: BISMUTH SUBSALICYLATE
  36. HYDROCORTISONE. [Concomitant]
     Active Substance: HYDROCORTISONE
  37. MEROPENEM. [Concomitant]
     Active Substance: MEROPENEM
  38. ZOSYN [Concomitant]
     Active Substance: PIPERACILLIN SODIUM\TAZOBACTAM SODIUM
  39. POVIDONE?IODINE. [Concomitant]
     Active Substance: POVIDONE-IODINE
  40. AZITHROMYCIN ANHYDROUS. [Concomitant]
     Active Substance: AZITHROMYCIN ANHYDROUS
  41. ACIPHEX [Concomitant]
     Active Substance: RABEPRAZOLE SODIUM
  42. PROTONIX [Suspect]
     Active Substance: PANTOPRAZOLE SODIUM
     Indication: GASTROOESOPHAGEAL REFLUX DISEASE
     Dosage: GENERIC
     Route: 065
     Dates: start: 2011, end: 2017
  43. FUROSEMIDE. [Concomitant]
     Active Substance: FUROSEMIDE
     Indication: RENAL DISORDER
  44. PREDNISONE. [Concomitant]
     Active Substance: PREDNISONE
     Indication: INFLAMMATION
  45. POTASSIUM [Concomitant]
     Active Substance: POTASSIUM
     Indication: HYPOVITAMINOSIS
  46. FLULAVAL [Concomitant]
  47. DONEPEZIL. [Concomitant]
     Active Substance: DONEPEZIL
  48. ALENDRONATE SODIUM. [Concomitant]
     Active Substance: ALENDRONATE SODIUM
  49. LOSARTAN POTASSIUM. [Concomitant]
     Active Substance: LOSARTAN POTASSIUM
  50. AMOXICILLIN. [Concomitant]
     Active Substance: AMOXICILLIN
  51. LACTIC ACID. [Concomitant]
     Active Substance: LACTIC ACID
  52. ASPIRIN. [Concomitant]
     Active Substance: ASPIRIN
  53. METFORMIN [Concomitant]
     Active Substance: METFORMIN HYDROCHLORIDE
  54. NEXIUM [Suspect]
     Active Substance: ESOMEPRAZOLE MAGNESIUM
     Indication: GASTROOESOPHAGEAL REFLUX DISEASE
     Route: 048
     Dates: start: 2001, end: 2015
  55. SIMVASTATIN. [Concomitant]
     Active Substance: SIMVASTATIN
     Indication: BLOOD CHOLESTEROL INCREASED
  56. LORAZEPAM. [Concomitant]
     Active Substance: LORAZEPAM
     Indication: SEIZURE
  57. METOPROLOL. [Concomitant]
     Active Substance: METOPROLOL
     Indication: HYPERTENSION
  58. VITAMIN B12 [Concomitant]
     Active Substance: CYANOCOBALAMIN
  59. GENTAMICIN. [Concomitant]
     Active Substance: GENTAMICIN
  60. TRAZODONE [Concomitant]
     Active Substance: TRAZODONE HYDROCHLORIDE
  61. PREVACID [Suspect]
     Active Substance: LANSOPRAZOLE
     Indication: GASTROOESOPHAGEAL REFLUX DISEASE
     Route: 065
     Dates: start: 200001, end: 201712
  62. PREVACID [Suspect]
     Active Substance: LANSOPRAZOLE
     Indication: GASTROOESOPHAGEAL REFLUX DISEASE
     Route: 065
     Dates: start: 200008, end: 2010
  63. RANITIDINE. [Concomitant]
     Active Substance: RANITIDINE
     Indication: GASTROOESOPHAGEAL REFLUX DISEASE
  64. MAALOX ANTACID [Concomitant]
     Active Substance: ALUMINUM HYDROXIDE\DIMETHICONE\MAGNESIUM HYDROXIDE
  65. ZOSTAVAX [Concomitant]
     Active Substance: VARICELLA-ZOSTER VIRUS STRAIN OKA/MERCK LIVE ANTIGEN
  66. MUPIROCIN. [Concomitant]
     Active Substance: MUPIROCIN
  67. VITAMIN D2 [Concomitant]
     Active Substance: ERGOCALCIFEROL
  68. FISH OIL [Concomitant]
     Active Substance: FISH OIL
  69. MYLANTA [Concomitant]
     Active Substance: ALUMINUM HYDROXIDE\DIMETHICONE\MAGNESIUM HYDROXIDE
  70. LIPITOR [Concomitant]
     Active Substance: ATORVASTATIN CALCIUM
  71. OXYCODONE/APAP [Concomitant]
     Active Substance: ACETAMINOPHEN\OXYCODONE HYDROCHLORIDE
  72. ZYPREXA [Concomitant]
     Active Substance: OLANZAPINE
  73. IBUPROFEN. [Concomitant]
     Active Substance: IBUPROFEN
  74. LOVASTATIN. [Concomitant]
     Active Substance: LOVASTATIN
  75. DICYCLOMINE [Concomitant]
     Active Substance: DICYCLOMINE HYDROCHLORIDE
  76. FENOFIBRATE. [Concomitant]
     Active Substance: FENOFIBRATE
  77. HYDROXYZINE HYDROCHLORIDE. [Concomitant]
     Active Substance: HYDROXYZINE HYDROCHLORIDE
  78. ENOXAPARIN [Concomitant]
     Active Substance: ENOXAPARIN
  79. CALCIUM [Concomitant]
     Active Substance: CALCIUM
  80. ZANTAC [Concomitant]
     Active Substance: RANITIDINE HYDROCHLORIDE
  81. ARICEPT [Concomitant]
     Active Substance: DONEPEZIL HYDROCHLORIDE
  82. AZTREONAM. [Concomitant]
     Active Substance: AZTREONAM
  83. CEFTAZIDIME. [Concomitant]
     Active Substance: CEFTAZIDIME
  84. GABAPENTIN. [Concomitant]
     Active Substance: GABAPENTIN
  85. CETRIZINE [Concomitant]
     Active Substance: CETIRIZINE HYDROCHLORIDE
  86. CORTISONE [Concomitant]
     Active Substance: CORTISONE
     Indication: INFLAMMATION

REACTIONS (3)
  - Chronic kidney disease [Unknown]
  - End stage renal disease [Fatal]
  - Renal failure [Unknown]

NARRATIVE: CASE EVENT DATE: 20120701
